FAERS Safety Report 7321264-0 (Version None)
Quarter: 2011Q1

REPORT INFORMATION
  Report Type: 
  Country: None (occurrence: None)
  Receive Date: 20110223
  Receipt Date: 20110223
  Transmission Date: 20110831
  Serious: Yes (Hospitalization)
  Sender: FDA-Public Use
  Company Number: None

PATIENT
  Sex: Male
  Weight: 83 kg

DRUGS (4)
  1. BEVACIZUMAB (RHUMAB VEGF) [Suspect]
     Dosage: 832 MG
     Dates: end: 20110105
  2. LEUCOVORIN CALCIUM [Suspect]
     Dosage: 2316 MG
  3. CAMPTOSAR [Suspect]
     Dosage: 1041 MG
  4. FLUOROURACIL [Suspect]
     Dosage: 16212 MG

REACTIONS (1)
  - PULMONARY EMBOLISM [None]
